FAERS Safety Report 9473670 (Version 1)
Quarter: 2013Q3

REPORT INFORMATION
  Report Type: Spontaneous
  Country: US (occurrence: US)
  Receive Date: 20130823
  Receipt Date: 20130823
  Transmission Date: 20140515
  Serious: No
  Sender: FDA-Public Use
  Company Number: US-BRISTOL-MYERS SQUIBB COMPANY-16851859

PATIENT
  Age: 39 Year
  Sex: Female
  Weight: 64.4 kg

DRUGS (4)
  1. SPRYCEL [Suspect]
     Indication: CHRONIC MYELOID LEUKAEMIA
     Route: 048
     Dates: start: 20110901
  2. XANAX [Concomitant]
  3. CALCIUM [Concomitant]
  4. PHOSPHOROUS [Concomitant]

REACTIONS (3)
  - Nausea [Recovered/Resolved]
  - Headache [Recovered/Resolved]
  - Eye swelling [Not Recovered/Not Resolved]
